FAERS Safety Report 5493050-8 (Version None)
Quarter: 2007Q4

REPORT INFORMATION
  Report Type: 
  Country: None (occurrence: None)
  Receive Date: 20071019
  Receipt Date: 20071004
  Transmission Date: 20080405
  Serious: Yes (Other)
  Sender: FDA-Public Use
  Company Number: STI-2007-01635

PATIENT
  Age: 46 Year
  Sex: Female

DRUGS (1)
  1. HYDROCORTISONE [Suspect]

REACTIONS (2)
  - IMMUNOSUPPRESSION [None]
  - NOCARDIOSIS [None]
